FAERS Safety Report 7704429 (Version 3)
Quarter: 2012Q4

REPORT INFORMATION
  Report Type: 
  Country: GB (occurrence: GB)
  Receive Date: 20101213
  Receipt Date: 20121106
  Transmission Date: 20130627
  Serious: Yes (Death, Other)
  Sender: FDA-Public Use
  Company Number: PHFR2010GB05793

PATIENT
  Age: 46 Year
  Sex: Female

DRUGS (4)
  1. CLOZARIL [Suspect]
     Indication: SCHIZOPHRENIA
     Dosage: UNK
     Route: 048
     Dates: start: 20081104
  2. CLOZARIL [Suspect]
     Dosage: 300 mg/day
     Route: 048
  3. EPILIM [Suspect]
     Indication: EPILEPSY
     Dosage: 1.5 g/day
  4. CITALOPRAM [Concomitant]
     Dosage: 20 mg/day
     Route: 048

REACTIONS (8)
  - Toxicity to various agents [Fatal]
  - Convulsion [Unknown]
  - Dyspnoea [Unknown]
  - Confusional state [Unknown]
  - Cyanosis [Unknown]
  - Syncope [Unknown]
  - Back pain [Unknown]
  - Obesity [Unknown]
